FAERS Safety Report 8174866-6 (Version None)
Quarter: 2012Q1

REPORT INFORMATION
  Report Type: 
  Country: None (occurrence: None)
  Receive Date: 20120229
  Receipt Date: 20110311
  Transmission Date: 20120608
  Serious: No
  Sender: FDA-Public Use
  Company Number: US-GLAXOSMITHKLINE-A0917829A

PATIENT
  Age: 38 Year
  Sex: Male

DRUGS (2)
  1. VALTREX [Suspect]
     Indication: HERPES ZOSTER
     Route: 048
     Dates: start: 20080701
  2. NO CONCURRENT MEDICATION [Concomitant]

REACTIONS (3)
  - DYSPNOEA [None]
  - NASOPHARYNGITIS [None]
  - HYPERSENSITIVITY [None]
